FAERS Safety Report 6770563-X (Version None)
Quarter: 2010Q2

REPORT INFORMATION
  Report Type: 
  Country: None (occurrence: None)
  Receive Date: 20100615
  Receipt Date: 20100531
  Transmission Date: 20101027
  Serious: Yes (Other)
  Sender: FDA-Public Use
  Company Number: FR-PFIZER INC-2010074522

PATIENT
  Age: 32 Year
  Sex: Female
  Weight: 100 kg

DRUGS (3)
  1. XALATAN [Suspect]
     Indication: DEVELOPMENTAL GLAUCOMA
     Dosage: 1 DROP PER DAY
     Route: 047
  2. TRUSOPT [Concomitant]
     Indication: DEVELOPMENTAL GLAUCOMA
     Dosage: UNK
     Route: 047
  3. ALPHAGAN [Concomitant]
     Indication: DEVELOPMENTAL GLAUCOMA
     Dosage: UNK
     Route: 047

REACTIONS (1)
  - GESTATIONAL DIABETES [None]
